FAERS Safety Report 25189627 (Version 1)
Quarter: 2025Q2

REPORT INFORMATION
  Report Type: Spontaneous
  Country: US (occurrence: None)
  Receive Date: 20250410
  Receipt Date: 20250410
  Transmission Date: 20250716
  Serious: No
  Sender: FDA-CTU
  Company Number: None

PATIENT
  Age: 77 Year
  Sex: Female

DRUGS (2)
  1. POMALYST [Suspect]
     Active Substance: POMALIDOMIDE
     Indication: Plasma cell myeloma
     Dates: start: 20250311
  2. POMALYST [Concomitant]
     Active Substance: POMALIDOMIDE
     Dates: start: 20250311

REACTIONS (1)
  - Rash [None]

NARRATIVE: CASE EVENT DATE: 20250410
